FAERS Safety Report 15799022 (Version 1)
Quarter: 2019Q1

REPORT INFORMATION
  Report Type: Spontaneous
  Country: US (occurrence: US)
  Receive Date: 20190108
  Receipt Date: 20190108
  Transmission Date: 20190417
  Serious: No
  Sender: FDA-Public Use
  Company Number: None

PATIENT
  Age: 64 Year
  Sex: Female
  Weight: 91.35 kg

DRUGS (6)
  1. ASPIRIN. [Concomitant]
     Active Substance: ASPIRIN
  2. TIZANIDINE. [Concomitant]
     Active Substance: TIZANIDINE
  3. LORAZEPAM. [Concomitant]
     Active Substance: LORAZEPAM
  4. ROPINIROLE. [Suspect]
     Active Substance: ROPINIROLE
     Indication: RESTLESS LEGS SYNDROME
     Dosage: ?          QUANTITY:2 TABLET(S);?
     Route: 048
     Dates: start: 20181201, end: 20190107
  5. GABAPENTIN. [Concomitant]
     Active Substance: GABAPENTIN
  6. ALBUTEROL. [Concomitant]
     Active Substance: ALBUTEROL

REACTIONS (9)
  - Insomnia [None]
  - Anxiety [None]
  - Palpitations [None]
  - Disturbance in attention [None]
  - Muscle spasms [None]
  - Sleep-related eating disorder [None]
  - Chest pain [None]
  - Urinary tract disorder [None]
  - Confusional state [None]

NARRATIVE: CASE EVENT DATE: 20181220
